FAERS Safety Report 15046105 (Version 1)
Quarter: 2018Q2

REPORT INFORMATION
  Report Type: Spontaneous
  Country: DE (occurrence: DE)
  Receive Date: 20180621
  Receipt Date: 20180621
  Transmission Date: 20180711
  Serious: Yes (Hospitalization)
  Sender: FDA-Public Use
  Company Number: DE-TEVA-2018-DE-911078

PATIENT
  Age: 49 Year
  Sex: Male

DRUGS (5)
  1. GEMCITABINE [Suspect]
     Active Substance: GEMCITABINE\GEMCITABINE HYDROCHLORIDE
     Dosage: NK MG, NK
     Route: 065
  2. METAMIZOL [Concomitant]
     Active Substance: METAMIZOLE SODIUM
     Dosage: NK MG, 40-40-40-40, TROPFEN
  3. INSULIN [Concomitant]
     Active Substance: INSULIN NOS
     Dosage: NK IE, NACH BZ
     Route: 065
  4. EFFENTORA [Concomitant]
     Active Substance: FENTANYL CITRATE
     Dosage: 200 ?G, BEDARF
  5. FENTANYL. [Concomitant]
     Active Substance: FENTANYL
     Dosage: 100 ?G, NK, PFLASTER TRANSDERMAL
     Route: 062

REACTIONS (1)
  - Chest pain [Unknown]

NARRATIVE: CASE EVENT DATE: 20170426
